FAERS Safety Report 7132583-5 (Version None)
Quarter: 2010Q4

REPORT INFORMATION
  Report Type: 
  Country: None (occurrence: None)
  Receive Date: 20101130
  Receipt Date: 20101130
  Transmission Date: 20110411
  Serious: Yes (Hospitalization)
  Sender: FDA-Public Use
  Company Number: None

PATIENT
  Sex: Female
  Weight: 82 kg

DRUGS (6)
  1. CYCLOPHOSPHAMIDE [Suspect]
     Dosage: 3540 MG
  2. CYTARABINE [Suspect]
     Dosage: 1866 MG
  3. MERCAPTOPURINE [Suspect]
     Dosage: 2500 MG
  4. METHOTREXATE [Suspect]
     Dosage: 60 MG
  5. PEG-L-ASPARAGINASE (K-H) [Suspect]
     Dosage: 6665 IU
  6. VINCRISTINE SULFATE [Suspect]
     Dosage: 6 MG

REACTIONS (7)
  - HEPATIC FAILURE [None]
  - JOINT EFFUSION [None]
  - MULTI-ORGAN FAILURE [None]
  - RENAL FAILURE [None]
  - RESPIRATORY FAILURE [None]
  - SEPSIS [None]
  - SYSTEMIC CANDIDA [None]
